FAERS Safety Report 4803414-0 (Version None)
Quarter: 2005Q4

REPORT INFORMATION
  Report Type: 
  Country: None (occurrence: None)
  Receive Date: 20051013
  Receipt Date: 20050927
  Transmission Date: 20060501
  Serious: Yes (Death, Hospitalization)
  Sender: FDA-Public Use
  Company Number: US-2005-020298

PATIENT
  Age: 68 Year
  Sex: Male

DRUGS (12)
  1. FLUDARA [Suspect]
     Indication: WALDENSTROM'S MACROGLOBULINAEMIA
     Dosage: 25 MG/M2, 5D
  2. RITUXIMAB [Concomitant]
  3. GRANULOCYTE COLONY STIMULATING FACTOR (GRANULOCYTE COLONY STIMULATING [Concomitant]
  4. BLOOD TRANSFUSION, AUXILIARY PRODUCTS [Concomitant]
  5. ACYCLOVIR [Concomitant]
  6. FLUCONAZOLE [Concomitant]
  7. CIPROFLOXACIN [Concomitant]
  8. AMLODIPINE [Concomitant]
  9. ALLOPURINOL [Concomitant]
  10. FOLATE SODIUM (FOLATE SODIUM) [Concomitant]
  11. ERYTHROPOIETIN (ERYTHROPOIETIN) [Concomitant]
  12. CORTICORSTEROIDS [Concomitant]

REACTIONS (14)
  - APLASTIC ANAEMIA [None]
  - BLOOD BILIRUBIN INCREASED [None]
  - BONE MARROW FAILURE [None]
  - CEREBRAL HAEMORRHAGE [None]
  - DIABETES MELLITUS [None]
  - FEBRILE NEUTROPENIA [None]
  - HYPERTENSION [None]
  - LOSS OF CONSCIOUSNESS [None]
  - LYMPHOPLASMACYTOID LYMPHOMA/IMMUNOCYTOMA [None]
  - PANCYTOPENIA [None]
  - PAROXYSMAL NOCTURNAL HAEMOGLOBINURIA [None]
  - PSEUDOMONAL BACTERAEMIA [None]
  - RETINAL HAEMORRHAGE [None]
  - THERAPY NON-RESPONDER [None]
